FAERS Safety Report 17344137 (Version 1)
Quarter: 2020Q1

REPORT INFORMATION
  Report Type: Spontaneous
  Country: US (occurrence: US)
  Receive Date: 20200129
  Receipt Date: 20200129
  Transmission Date: 20200409
  Serious: No
  Sender: FDA-Public Use
  Company Number: US-ALLERGAN-1927274US

PATIENT
  Age: 65 Year
  Sex: Female
  Weight: 63.49 kg

DRUGS (5)
  1. HYDROQUINONE. [Concomitant]
     Active Substance: HYDROQUINONE
     Indication: SKIN DISCOLOURATION
     Dosage: UNK
     Route: 061
  2. BOTOX COSMETIC [Suspect]
     Active Substance: ONABOTULINUMTOXINA
     Indication: SKIN WRINKLING
     Dosage: 1 UNITS, SINGLE
     Dates: start: 20190510, end: 20190510
  3. BOTOX COSMETIC [Suspect]
     Active Substance: ONABOTULINUMTOXINA
     Indication: SKIN WRINKLING
     Dosage: 2 UNITS, SINGLE
     Dates: start: 20190510, end: 20190510
  4. BOTOX COSMETIC [Suspect]
     Active Substance: ONABOTULINUMTOXINA
     Dosage: 1 UNITS, SINGLE
     Dates: start: 20190510, end: 20190510
  5. BOTOX COSMETIC [Suspect]
     Active Substance: ONABOTULINUMTOXINA
     Dosage: 20 UNITS, SINGLE
     Dates: start: 20190426, end: 20190426

REACTIONS (1)
  - Drug ineffective [Unknown]

NARRATIVE: CASE EVENT DATE: 20190426
